FAERS Safety Report 8146992-9 (Version None)
Quarter: 2012Q1

REPORT INFORMATION
  Report Type: 
  Country: None (occurrence: None)
  Receive Date: 20120217
  Receipt Date: 20120209
  Transmission Date: 20120608
  Serious: Yes (Hospitalization)
  Sender: FDA-Public Use
  Company Number: SE-ASTRAZENECA-2012SE08827

PATIENT
  Age: 26106 Day
  Sex: Male

DRUGS (14)
  1. ALLOPURINOL [Concomitant]
  2. SUSCARD [Concomitant]
     Route: 002
  3. HUMALOG [Concomitant]
  4. DIMOR [Concomitant]
  5. BISOPROLOL FUMARATE [Concomitant]
  6. SPIRONOLACTONE [Suspect]
     Indication: CARDIAC DISORDER
     Route: 048
     Dates: start: 20111208
  7. LEVEMIR [Concomitant]
  8. HYDROXOCOBALAMIN [Concomitant]
  9. LEVOTHYROXINE SODIUM [Concomitant]
  10. OXAZEPAM [Concomitant]
  11. ATACAND [Suspect]
     Indication: CARDIAC DISORDER
     Route: 048
     Dates: start: 20111215, end: 20111228
  12. FUROSEMIDE [Concomitant]
  13. CIPRALEX [Concomitant]
  14. NITROLINGUAL [Concomitant]
     Route: 060

REACTIONS (4)
  - MUSCLE SPASMS [None]
  - CONFUSIONAL STATE [None]
  - HYPERKALAEMIA [None]
  - HYPOTENSION [None]
